FAERS Safety Report 6524766-X (Version None)
Quarter: 2010Q1

REPORT INFORMATION
  Report Type: 
  Country: None (occurrence: None)
  Receive Date: 20100104
  Receipt Date: 20091221
  Transmission Date: 20100710
  Serious: Yes (Other)
  Sender: FDA-Public Use
  Company Number: JP-PFIZER INC-2009314158

PATIENT

DRUGS (1)
  1. NORVASC [Suspect]

REACTIONS (2)
  - HAEMATURIA [None]
  - PROTEINURIA [None]
